FAERS Safety Report 7007957-3 (Version None)
Quarter: 2010Q3

REPORT INFORMATION
  Report Type: 
  Country: None (occurrence: None)
  Receive Date: 20100922
  Receipt Date: 20100910
  Transmission Date: 20110219
  Serious: Yes (Other)
  Sender: FDA-Public Use
  Company Number: JP-PFIZER INC-2010115526

PATIENT
  Sex: Female

DRUGS (2)
  1. GABAPEN [Suspect]
     Route: 050
  2. MEDROL [Suspect]
     Route: 050

REACTIONS (1)
  - ABORTION [None]
